FAERS Safety Report 7245551 (Version 3)
Quarter: 2012Q4

REPORT INFORMATION
  Report Type: 
  Country: US (occurrence: None)
  Receive Date: 20091229
  Receipt Date: 20120912
  Transmission Date: 20130627
  Serious: Yes (Hospitalization, Other)
  Sender: FDA-Public Use
  Company Number: 2009AP005064

PATIENT
  Age: 77 Year
  Sex: Female

DRUGS (9)
  1. AMIODARONE HYDROCHLORIDE [Suspect]
     Indication: ATRIAL FIBRILLATION
     Dosage: 200 MG;QD;PO
     Route: 048
  2. LISINOPRIL [Concomitant]
  3. GLIMEPIRIDE [Concomitant]
  4. ESOMEPRAZOLE [Concomitant]
  5. LEVOTHYROXINE SODIUM [Concomitant]
  6. FUROSEMIDE [Concomitant]
  7. SPIRONOLACTONE [Concomitant]
  8. PROPRANOLOL [Concomitant]
  9. ISOSORBIDE DINITRATE [Concomitant]

REACTIONS (22)
  - HEPATIC STEATOSIS [None]
  - HEPATIC CIRRHOSIS [None]
  - HEPATIC FAILURE [None]
  - TOXICITY TO VARIOUS AGENTS [None]
  - HEPATIC FIBROSIS [None]
  - MUSCLE ATROPHY [None]
  - ANAEMIA [None]
  - PLEURAL EFFUSION [None]
  - PULMONARY HYPERTENSION [None]
  - TRICUSPID VALVE INCOMPETENCE [None]
  - LEFT VENTRICULAR HYPERTROPHY [None]
  - RESTRICTIVE PULMONARY DISEASE [None]
  - PORTAL HYPERTENSION [None]
  - HAEMORRHAGE [None]
  - BLEEDING VARICOSE VEIN [None]
  - CARDIAC MURMUR [None]
  - TELANGIECTASIA [None]
  - ANTINUCLEAR ANTIBODY POSITIVE [None]
  - CARDIOMEGALY [None]
  - PULMONARY ARTERIAL WEDGE PRESSURE INCREASED [None]
  - VASCULAR RESISTANCE SYSTEMIC INCREASED [None]
  - AUTOIMMUNE HEPATITIS [None]
